FAERS Safety Report 25874784 (Version 1)
Quarter: 2025Q4

REPORT INFORMATION
  Report Type: Spontaneous
  Country: US (occurrence: US)
  Receive Date: 20251002
  Receipt Date: 20251002
  Transmission Date: 20260118
  Serious: No
  Sender: MERCK SHARP & DOHME LLC
  Company Number: US-009507513-2318730

PATIENT
  Sex: Female

DRUGS (6)
  1. KEYTRUDA [Suspect]
     Active Substance: PEMBROLIZUMAB
     Indication: Malignant peritoneal neoplasm
  2. LENVIMA [Suspect]
     Active Substance: LENVATINIB
     Indication: Malignant peritoneal neoplasm
     Dosage: 2 X 10 MG: TAKE 2 CAPSULES ( 20 MG) BY MOUTH EVERY DAY
     Route: 048
     Dates: start: 20250130
  3. DEXAMETHASONE [Concomitant]
     Active Substance: DEXAMETHASONE
  4. FERROUS SULF TAB 325MG [Concomitant]
  5. GABAPENTIN [Concomitant]
     Active Substance: GABAPENTIN
  6. ONDANSETRON [Concomitant]
     Active Substance: ONDANSETRON

REACTIONS (1)
  - Diarrhoea [Unknown]
